FAERS Safety Report 5806198-2 (Version None)
Quarter: 2008Q3

REPORT INFORMATION
  Report Type: 
  Country: None (occurrence: None)
  Receive Date: 20080709
  Receipt Date: 20080709
  Transmission Date: 20090109
  Serious: Yes (Disabling)
  Sender: FDA-Public Use
  Company Number: None

PATIENT
  Sex: Female

DRUGS (1)
  1. MARCAINE HYDROCHLORIDE W/ EPINEPHRINE [Suspect]
     Indication: SHOULDER OPERATION
     Dosage: 270 CC 1:200,000 2X2 ML/HR 014
     Dates: start: 20040322

REACTIONS (1)
  - CHONDROPATHY [None]
